FAERS Safety Report 10613788 (Version 9)
Quarter: 2015Q1

REPORT INFORMATION
  Report Type: Spontaneous
  Country: CN (occurrence: CN)
  Receive Date: 20141128
  Receipt Date: 20150304
  Transmission Date: 20150720
  Serious: Yes (Hospitalization)
  Sender: FDA-Public Use
  Company Number: CN-009507513-1411CHN012400

PATIENT
  Age: 54 Year
  Sex: Male
  Weight: 59.7 kg

DRUGS (14)
  1. ONDANSETRON [Concomitant]
     Active Substance: ONDANSETRON
     Indication: PROPHYLAXIS OF NAUSEA AND VOMITING
     Dosage: TOTAL DAILY DOSE: 8MG; QD
     Route: 042
     Dates: start: 20141113, end: 20141115
  2. EMEND [Suspect]
     Active Substance: APREPITANT
     Indication: PROPHYLAXIS OF NAUSEA AND VOMITING
     Dosage: 125 MG, QD; DAY 1
     Route: 048
     Dates: start: 20141113, end: 20141113
  3. EMEND [Suspect]
     Active Substance: APREPITANT
     Dosage: 80 MG, QD; DAY 2
     Route: 048
     Dates: start: 20141114, end: 20141114
  4. EMEND [Suspect]
     Active Substance: APREPITANT
     Dosage: 80 MG, QD; DAY3
     Route: 048
     Dates: start: 20141115, end: 20141115
  5. GLUTATHIONE [Concomitant]
     Active Substance: GLUTATHIONE
     Indication: PROPHYLAXIS
     Dosage: TOTAL DAILY DOSE: 1.8 G; QD
     Route: 041
     Dates: start: 20141113, end: 20141115
  6. SODIUM BICARBONATE. [Concomitant]
     Active Substance: SODIUM BICARBONATE
     Indication: URINE ABNORMALITY
     Dosage: 50ML/CC
     Route: 041
     Dates: start: 20141113, end: 20141115
  7. ENOXAPARIN SODIUM. [Concomitant]
     Active Substance: ENOXAPARIN SODIUM
     Indication: DEEP VEIN THROMBOSIS
     Dosage: 40 MG, BID
     Dates: start: 20141113
  8. PANTOPRAZOLE [Concomitant]
     Active Substance: PANTOPRAZOLE SODIUM
     Indication: PROPHYLAXIS
     Dosage: TOTAL DAILY DOSE: 42.3MG; QD
     Route: 041
     Dates: start: 20141113, end: 20141115
  9. DEXAMETHASONE. [Concomitant]
     Active Substance: DEXAMETHASONE
     Indication: PROPHYLAXIS OF NAUSEA AND VOMITING
     Dosage: TOTAL DAILY DOSE: 12MG; QD
     Route: 048
     Dates: start: 20141113, end: 20141115
  10. CISPLATIN. [Suspect]
     Active Substance: CISPLATIN
     Indication: CHEMOTHERAPY
     Dosage: 40 MG, FREQUENCY: D1-D3
     Route: 041
     Dates: start: 20141113, end: 20141115
  11. ETOPOSIDE. [Suspect]
     Active Substance: ETOPOSIDE
     Indication: CHEMOTHERAPY
     Dosage: 200 MG, FREQUENCY: D1-D3
     Route: 041
     Dates: start: 20141113, end: 20141115
  12. ENOXAPARIN SODIUM. [Concomitant]
     Active Substance: ENOXAPARIN SODIUM
     Indication: THROMBOSIS PROPHYLAXIS
     Dosage: TOTAL DAILY DOSE: 40MG; QD
     Route: 058
     Dates: start: 20141114, end: 20141116
  13. MANNITOL. [Concomitant]
     Active Substance: MANNITOL
     Indication: POLYURIA
     Dosage: TOTAL DAILY DOSE: 50G; QD
     Route: 041
     Dates: start: 20141113, end: 20141115
  14. CALCIUM GLUCONATE (+) MAGNESIUM SULFATE (+) POTASSIUM CHLORIDE (+) SOD [Concomitant]
     Indication: ELECTROLYTE SUBSTITUTION THERAPY
     Dosage: 500 ML, QD
     Route: 041
     Dates: start: 20141113, end: 20141115

REACTIONS (9)
  - Thrombocytopenia [Not Recovered/Not Resolved]
  - Pyrexia [Not Recovered/Not Resolved]
  - Febrile neutropenia [Recovered/Resolved]
  - White blood cell count decreased [Not Recovered/Not Resolved]
  - Anaemia [Not Recovered/Not Resolved]
  - Granulocytopenia [Recovered/Resolved]
  - Neuralgia [Not Recovered/Not Resolved]
  - Hypocalcaemia [Not Recovered/Not Resolved]
  - Hyponatraemia [Not Recovered/Not Resolved]

NARRATIVE: CASE EVENT DATE: 20141124
